FAERS Safety Report 10391884 (Version 5)
Quarter: 2015Q1

REPORT INFORMATION
  Report Type: Report from Study
  Country: CA (occurrence: CA)
  Receive Date: 20140819
  Receipt Date: 20150218
  Transmission Date: 20150720
  Serious: Yes (Other)
  Sender: FDA-Public Use
  Company Number: PHHY2014CA087479

PATIENT
  Age: 58 Year
  Sex: Female

DRUGS (3)
  1. VICTOZA [Concomitant]
     Active Substance: LIRAGLUTIDE
     Indication: PRODUCT USED FOR UNKNOWN INDICATION
     Route: 065
  2. SIGNIFOR [Suspect]
     Active Substance: PASIREOTIDE
     Indication: PITUITARY-DEPENDENT CUSHING^S SYNDROME
     Dosage: 0.6 MG, BID
     Route: 058
     Dates: start: 20140714, end: 201407
  3. LEVEMIR [Concomitant]
     Active Substance: INSULIN DETEMIR
     Indication: PRODUCT USED FOR UNKNOWN INDICATION
     Route: 058

REACTIONS (22)
  - Middle insomnia [Unknown]
  - Frequent bowel movements [Unknown]
  - Abdominal pain upper [Unknown]
  - Joint swelling [Unknown]
  - Arthralgia [Unknown]
  - Asthenia [Unknown]
  - Rash [Unknown]
  - Hyperglycaemia [Unknown]
  - Muscular weakness [Recovered/Resolved]
  - Movement disorder [Not Recovered/Not Resolved]
  - Faeces discoloured [Unknown]
  - Hypoaesthesia [Unknown]
  - Fatigue [Unknown]
  - Blood pressure systolic increased [Unknown]
  - Malaise [Recovering/Resolving]
  - Pain [Unknown]
  - Feeling abnormal [Unknown]
  - Nausea [Unknown]
  - Abdominal distension [Unknown]
  - Pain of skin [Unknown]
  - Local swelling [Unknown]
  - Gait disturbance [Unknown]

NARRATIVE: CASE EVENT DATE: 20140714
